FAERS Safety Report 9868536 (Version 1)
Quarter: 2014Q1

REPORT INFORMATION
  Report Type: Spontaneous
  Country: TR (occurrence: TR)
  Receive Date: 20140204
  Receipt Date: 20140204
  Transmission Date: 20141002
  Serious: Yes (Hospitalization)
  Sender: FDA-Public Use
  Company Number: TR-PFIZER INC-2014028427

PATIENT
  Age: 23 Year
  Sex: Male

DRUGS (1)
  1. SILDENAFIL CITRATE [Suspect]
     Indication: ERECTILE DYSFUNCTION
     Dosage: 100 MG, UNK

REACTIONS (3)
  - Acute myocardial infarction [Recovered/Resolved]
  - Coronary artery dilatation [Recovered/Resolved]
  - Hypotension [Unknown]
